FAERS Safety Report 16633125 (Version 1)
Quarter: 2019Q3

REPORT INFORMATION
  Report Type: Spontaneous
  Country: FR (occurrence: FR)
  Receive Date: 20190725
  Receipt Date: 20190725
  Transmission Date: 20191004
  Serious: Yes (Other)
  Sender: FDA-Public Use
  Company Number: FR-009507513-1907FRA013216

PATIENT
  Age: 68 Year

DRUGS (1)
  1. PEMBROLIZUMAB. [Suspect]
     Active Substance: PEMBROLIZUMAB
     Indication: METASTATIC MALIGNANT MELANOMA
     Dosage: UNK
     Dates: start: 201608

REACTIONS (2)
  - Immune-mediated adverse reaction [Unknown]
  - Transient acantholytic dermatosis [Unknown]

NARRATIVE: CASE EVENT DATE: 201612
